FAERS Safety Report 5406394-2 (Version None)
Quarter: 2007Q3

REPORT INFORMATION
  Report Type: 
  Country: None (occurrence: None)
  Receive Date: 20070806
  Receipt Date: 20070726
  Transmission Date: 20080115
  Serious: Yes (Hospitalization)
  Sender: FDA-Public Use
  Company Number: FR-SHR-FR-2007-027901

PATIENT
  Age: 54 Year
  Sex: Male

DRUGS (12)
  1. CAMPATH [Suspect]
     Indication: MYCOSIS FUNGOIDES
     Dosage: 3 MG, 1 DOSE
     Route: 058
     Dates: start: 20070716, end: 20070716
  2. CAMPATH [Suspect]
     Dosage: 10 MG, 1 DOSE
     Route: 058
     Dates: start: 20070718, end: 20070718
  3. CAMPATH [Suspect]
     Dosage: 30 MG, 1 DOSE
     Route: 042
     Dates: start: 20070720, end: 20070720
  4. CAMPATH [Suspect]
     Dosage: 30 MG, 1 DOSE
     Route: 042
     Dates: start: 20070723, end: 20070723
  5. SOLU-MEDROL [Concomitant]
     Dosage: 20 MG, 1 DOSE
     Dates: start: 20070716, end: 20070716
  6. SOLU-MEDROL [Concomitant]
     Dosage: 20 MG, 1 DOSE
     Dates: start: 20070718, end: 20070718
  7. SOLU-MEDROL [Concomitant]
     Dosage: 20 MG, 1 DOSE
     Dates: start: 20070720, end: 20070720
  8. SOLU-MEDROL [Concomitant]
     Dosage: 20 MG, 1 DOSE
     Dates: start: 20070723, end: 20070723
  9. ATARAX [Concomitant]
     Dosage: 25 MG, 1 DOSE
     Dates: start: 20070716, end: 20070716
  10. ATARAX [Concomitant]
     Dosage: 25 MG, 1 DOSE
     Dates: start: 20070718, end: 20070718
  11. ATARAX [Concomitant]
     Dosage: 25 MG, 1 DOSE
     Dates: start: 20070720, end: 20070720
  12. ATARAX [Concomitant]
     Dosage: 25 MG, 1 DOSE
     Dates: start: 20070723, end: 20070723

REACTIONS (7)
  - CHILLS [None]
  - CHOLESTASIS [None]
  - COUGH [None]
  - CYTOLYTIC HEPATITIS [None]
  - HYPOTENSION [None]
  - LYMPHOPENIA [None]
  - PYREXIA [None]
